FAERS Safety Report 14314270 (Version 2)
Quarter: 2018Q1

REPORT INFORMATION
  Report Type: Spontaneous
  Country: US (occurrence: US)
  Receive Date: 20171221
  Receipt Date: 20180102
  Transmission Date: 20180509
  Serious: Yes (Other)
  Sender: FDA-Public Use
  Company Number: US-BEH-2017086098

PATIENT
  Sex: Female

DRUGS (2)
  1. HUMAN IMMUNOGLOBULIN (NC) [Suspect]
     Active Substance: HUMAN IMMUNOGLOBULIN G
     Indication: IMMUNODEFICIENCY COMMON VARIABLE
  2. GAMMAGARD [Suspect]
     Active Substance: HUMAN IMMUNOGLOBULIN G
     Indication: IMMUNODEFICIENCY COMMON VARIABLE
     Route: 042

REACTIONS (8)
  - Sinusitis [Unknown]
  - Rheumatoid arthritis [Unknown]
  - Weight decreased [Unknown]
  - Immunodeficiency common variable [Unknown]
  - Unevaluable event [Unknown]
  - Drug intolerance [Unknown]
  - Pneumonia [Unknown]
  - Systemic lupus erythematosus [Unknown]
